FAERS Safety Report 4983594-7 (Version None)
Quarter: 2006Q2

REPORT INFORMATION
  Report Type: 
  Country: None (occurrence: None)
  Receive Date: 20060426
  Receipt Date: 20060407
  Transmission Date: 20061013
  Serious: Yes (Life-Threatening, Hospitalization)
  Sender: FDA-Public Use
  Company Number: ES-ROCHE-443632

PATIENT
  Age: 70 Year
  Sex: Male

DRUGS (5)
  1. INVIRASE [Suspect]
     Dosage: TOOK THREE TABLETS/ 8 HOURS OF SAQUINAVIR 500 MG FOR THREE DAYS INSTEAD OF SAQUINAVIR 200 MG.
     Route: 048
     Dates: start: 20060107, end: 20060110
  2. INVIRASE [Suspect]
     Route: 048
  3. ZIDOVUDINE [Suspect]
     Route: 048
     Dates: start: 19980615
  4. EPIVIR [Suspect]
     Route: 048
     Dates: start: 19980615
  5. INVIRASE [Concomitant]
     Route: 048
     Dates: start: 19980615

REACTIONS (1)
  - ATRIAL FIBRILLATION [None]
